FAERS Safety Report 19633027 (Version 1)
Quarter: 2021Q3

REPORT INFORMATION
  Report Type: Spontaneous
  Country: US (occurrence: US)
  Receive Date: 20210730
  Receipt Date: 20210730
  Transmission Date: 20211014
  Serious: Yes (Hospitalization, Other)
  Sender: FDA-Public Use
  Company Number: US-DRREDDYS-LIT/USA/21/0138315

PATIENT
  Age: 35 Year
  Sex: Female

DRUGS (11)
  1. CIS?ATRACURIUM [Suspect]
     Active Substance: CISATRACURIUM
     Indication: SEDATION
  2. PROPOFOL INJECTABLE EMULSION [Suspect]
     Active Substance: PROPOFOL
     Indication: SEDATION
     Dosage: DRIP
  3. CIS?ATRACURIUM [Suspect]
     Active Substance: CISATRACURIUM
     Indication: GENERAL ANAESTHESIA
  4. HEPARIN SODIUM. [Suspect]
     Active Substance: HEPARIN SODIUM
     Indication: PRODUCT USED FOR UNKNOWN INDICATION
  5. METHYLPREDNISOLONE. [Concomitant]
     Active Substance: METHYLPREDNISOLONE
     Indication: PRODUCT USED FOR UNKNOWN INDICATION
     Route: 042
  6. FENTANYL CITRATE. [Suspect]
     Active Substance: FENTANYL CITRATE
     Indication: SEDATION
  7. VECURONIUM [Suspect]
     Active Substance: VECURONIUM BROMIDE
     Indication: SEDATION
  8. VECURONIUM [Suspect]
     Active Substance: VECURONIUM BROMIDE
     Indication: GENERAL ANAESTHESIA
  9. FENTANYL CITRATE. [Suspect]
     Active Substance: FENTANYL CITRATE
     Indication: GENERAL ANAESTHESIA
  10. PROPOFOL INJECTABLE EMULSION [Suspect]
     Active Substance: PROPOFOL
     Indication: GENERAL ANAESTHESIA
  11. ALBUTEROL. [Concomitant]
     Active Substance: ALBUTEROL
     Indication: PRODUCT USED FOR UNKNOWN INDICATION

REACTIONS (3)
  - Premature rupture of membranes [Unknown]
  - Acute respiratory distress syndrome [Unknown]
  - Maternal exposure during pregnancy [Unknown]
